FAERS Safety Report 19811385 (Version 1)
Quarter: 2021Q3

REPORT INFORMATION
  Report Type: Spontaneous
  Country: ES (occurrence: ES)
  Receive Date: 20210909
  Receipt Date: 20210909
  Transmission Date: 20211014
  Serious: Yes (Hospitalization)
  Sender: FDA-Public Use
  Company Number: ES-PFIZER INC-202101123758

PATIENT
  Age: 64 Year
  Sex: Male

DRUGS (3)
  1. CISPLATINO PHARMACIA [Concomitant]
     Active Substance: CISPLATIN
     Dosage: 1MG/ML, 1VIAL OF 50ML
     Dates: start: 20210430
  2. TRUXIMA [Suspect]
     Active Substance: RITUXIMAB-ABBS
     Dosage: 100MG 2 VIAL OF 10 ML
     Dates: start: 20210430
  3. CITARABINA [Suspect]
     Active Substance: CYTARABINE
     Dosage: UNK
     Dates: start: 20210430

REACTIONS (2)
  - Epistaxis [Recovering/Resolving]
  - Neutropenia [Recovering/Resolving]

NARRATIVE: CASE EVENT DATE: 20210430
